FAERS Safety Report 9267394 (Version 2)
Quarter: 2013Q2

REPORT INFORMATION
  Report Type: Report from Study
  Country: BR (occurrence: BR)
  Receive Date: 20130502
  Receipt Date: 20130514
  Transmission Date: 20140414
  Serious: Yes (Other)
  Sender: FDA-Public Use
  Company Number: BR-ABBOTT-13P-020-1083140-00

PATIENT
  Age: 29 Year
  Sex: Female
  Weight: 56 kg

DRUGS (4)
  1. HUMIRA [Suspect]
     Indication: ANKYLOSING SPONDYLITIS
     Route: 058
     Dates: start: 201212, end: 20130316
  2. PREDNISONE [Concomitant]
     Indication: PAIN
     Route: 048
     Dates: start: 2009
  3. METHOTREXATE [Concomitant]
     Indication: CHONDROPATHY
     Route: 048
     Dates: start: 2009
  4. CYCLOBENZAPRINE [Concomitant]
     Indication: MUSCLE RELAXANT THERAPY
     Dosage: 3/4 PER WEEK
     Route: 048
     Dates: start: 2009

REACTIONS (5)
  - Wisdom teeth removal [Recovered/Resolved]
  - Weight increased [Not Recovered/Not Resolved]
  - Immune system disorder [Unknown]
  - Tooth disorder [Unknown]
  - Urinary tract infection [Unknown]
